FAERS Safety Report 9753130 (Version 2)
Quarter: 2015Q3

REPORT INFORMATION
  Report Type: Spontaneous
  Country: US (occurrence: US)
  Receive Date: 20131213
  Receipt Date: 20150805
  Transmission Date: 20151125
  Serious: No
  Sender: FDA-Public Use
  Company Number: US-GILEAD-2010-0026388

PATIENT
  Age: 57 Year
  Sex: Female
  Weight: 72.57 kg

DRUGS (10)
  1. IPRATROPIUM BROMIDE/SALBUTAMOL SULFATE [Concomitant]
  2. SYNTHROID [Concomitant]
     Active Substance: LEVOTHYROXINE SODIUM
  3. LASIX [Concomitant]
     Active Substance: FUROSEMIDE
  4. LETAIRIS [Suspect]
     Active Substance: AMBRISENTAN
     Indication: PULMONARY ARTERIAL HYPERTENSION
     Route: 048
     Dates: start: 20091111
  5. TYLENOL [Concomitant]
     Active Substance: ACETAMINOPHEN
  6. COUMADIN [Concomitant]
     Active Substance: WARFARIN SODIUM
  7. CALCITRIOL. [Concomitant]
     Active Substance: CALCITRIOL
  8. SPIRONOLACTONE. [Concomitant]
     Active Substance: SPIRONOLACTONE
  9. DIGOXIN. [Concomitant]
     Active Substance: DIGOXIN
  10. VITAMIN D [Concomitant]
     Active Substance: CHOLECALCIFEROL

REACTIONS (1)
  - Hypotension [Unknown]
